FAERS Safety Report 23632046 (Version 1)
Quarter: 2024Q1

REPORT INFORMATION
  Report Type: Spontaneous
  Country: US (occurrence: None)
  Receive Date: 20240313
  Receipt Date: 20240313
  Transmission Date: 20240409
  Serious: Yes (Death)
  Sender: FDA-Public Use
  Company Number: None

PATIENT
  Age: 80 Year
  Sex: Female
  Weight: 45.45 kg

DRUGS (12)
  1. POMALYST [Suspect]
     Active Substance: POMALIDOMIDE
     Indication: Plasma cell myeloma
     Dosage: FREQUENCY : DAILY;?
     Route: 048
     Dates: start: 20231102, end: 20240309
  2. ACYCLOVIR [Concomitant]
     Active Substance: ACYCLOVIR
  3. DEXAMETHASONE [Concomitant]
     Active Substance: DEXAMETHASONE
  4. LORAZEPAM [Concomitant]
     Active Substance: LORAZEPAM
  5. nystatin 100,000 unit/mL oral suspension [Concomitant]
  6. omeprazole 20 mg capsule,delayed release [Concomitant]
  7. ONDANSETRON HCL 8 MG TABLET [Concomitant]
  8. SINGULAIR [Concomitant]
     Active Substance: MONTELUKAST SODIUM
  9. tramadol 50 mg tablet [Concomitant]
  10. Edit	tumeric 100 mg-ginger 150 mg-olive 50 mg-oreg 150 mg-caprylate ca [Concomitant]
  11. Epoetin alfa CKD 20000Units SUBQ q 1wk x 24 Cycles v6.0 [Concomitant]
  12. Kyprolis (carfilzomib) 20mg/m2 IV C1 d1,2; 56mg/m2 d8,9,15,16;C2 and s [Concomitant]

REACTIONS (1)
  - Death [None]

NARRATIVE: CASE EVENT DATE: 20240309
